FAERS Safety Report 8316505-7 (Version None)
Quarter: 2012Q2

REPORT INFORMATION
  Report Type: 
  Country: None (occurrence: None)
  Receive Date: 20120427
  Receipt Date: 20120417
  Transmission Date: 20120825
  Serious: Yes (Hospitalization, Other)
  Sender: FDA-Public Use
  Company Number: PHEH2011US010619

PATIENT
  Sex: Male

DRUGS (19)
  1. GILENYA [Suspect]
     Indication: MULTIPLE SCLEROSIS
     Dosage: 0.5 MG, QD
     Route: 048
     Dates: start: 20110512
  2. AMRIX [Concomitant]
  3. VITAMIN B COMPLEX CAP [Concomitant]
  4. CALCIUM CARBONATE [Concomitant]
  5. VALTREX [Concomitant]
     Dosage: 1 G, TID
  6. BONIVA [Concomitant]
  7. ARICEPT [Concomitant]
  8. CYMBALTA [Concomitant]
     Indication: PAIN
  9. LAMICTAL [Concomitant]
  10. LEVOTHYROXINE SODIUM [Concomitant]
  11. CALCIUM [Concomitant]
  12. IBUPROFEN [Concomitant]
  13. LOVAZA [Concomitant]
     Dosage: 1 G, DAILY
  14. LISINOPRIL [Concomitant]
     Dosage: 10 MG, DAILY
  15. SYNTHROID [Concomitant]
     Dosage: 50 UG, DAILY
  16. TESTOSTERONE [Concomitant]
  17. VITAMIN D [Concomitant]
  18. MULTI-VITAMINS [Concomitant]
  19. ANDROGEL [Concomitant]
     Route: 061

REACTIONS (45)
  - INTRASPINAL ABSCESS [None]
  - INTERVERTEBRAL DISCITIS [None]
  - MICTURITION URGENCY [None]
  - HYPERTONIA [None]
  - ALOPECIA [None]
  - ABASIA [None]
  - PARASPINAL ABSCESS [None]
  - MULTIPLE SCLEROSIS RELAPSE [None]
  - FATIGUE [None]
  - BLOOD CHOLESTEROL INCREASED [None]
  - PROTEIN TOTAL DECREASED [None]
  - HERPES ZOSTER [None]
  - MONOPLEGIA [None]
  - SKIN DISCOLOURATION [None]
  - MONOCYTE COUNT INCREASED [None]
  - ALBUMIN GLOBULIN RATIO INCREASED [None]
  - LEFT VENTRICULAR HYPERTROPHY [None]
  - MEAN PLATELET VOLUME DECREASED [None]
  - LYMPHOCYTE COUNT DECREASED [None]
  - GAIT DISTURBANCE [None]
  - OSTEOMYELITIS [None]
  - RED BLOOD CELL SEDIMENTATION RATE INCREASED [None]
  - SCOLIOSIS [None]
  - ATELECTASIS [None]
  - CERVICAL SPINAL STENOSIS [None]
  - CENTRAL NERVOUS SYSTEM LESION [None]
  - HAEMOGLOBIN DECREASED [None]
  - WHITE BLOOD CELL COUNT DECREASED [None]
  - MUSCULAR WEAKNESS [None]
  - SPINAL OSTEOARTHRITIS [None]
  - DIASTOLIC DYSFUNCTION [None]
  - BLOOD UREA NITROGEN/CREATININE RATIO INCREASED [None]
  - BLOOD CALCIUM DECREASED [None]
  - BLOOD ALKALINE PHOSPHATASE INCREASED [None]
  - ALANINE AMINOTRANSFERASE INCREASED [None]
  - HYPERTENSION [None]
  - LUMBAR SPINAL STENOSIS [None]
  - OEDEMA PERIPHERAL [None]
  - BLOOD ALBUMIN DECREASED [None]
  - LOW DENSITY LIPOPROTEIN INCREASED [None]
  - HAEMATOCRIT DECREASED [None]
  - MEAN CELL HAEMOGLOBIN [None]
  - BACK PAIN [None]
  - GLOBULINS DECREASED [None]
  - ASPARTATE AMINOTRANSFERASE INCREASED [None]
